FAERS Safety Report 17927427 (Version 1)
Quarter: 2020Q2

REPORT INFORMATION
  Report Type: Spontaneous
  Country: FR (occurrence: FR)
  Receive Date: 20200622
  Receipt Date: 20200622
  Transmission Date: 20200714
  Serious: Yes (Other)
  Sender: FDA-Public Use
  Company Number: NVSC2020FR173993

PATIENT
  Sex: Male
  Weight: 74 kg

DRUGS (2)
  1. HYDROXYCHLOROQUINE SULFATE. [Suspect]
     Active Substance: HYDROXYCHLOROQUINE SULFATE
     Indication: CORONAVIRUS INFECTION
     Dosage: 400 MG, QD
     Route: 048
     Dates: start: 20200404, end: 20200408
  2. AMOXICILLIN TRIHYDRATE [Suspect]
     Active Substance: AMOXICILLIN
     Indication: CORONAVIRUS TEST POSITIVE
     Dosage: 3 G, QD
     Route: 048
     Dates: start: 20200405

REACTIONS (2)
  - Hepatic enzyme increased [Not Recovered/Not Resolved]
  - Intentional product use issue [Unknown]

NARRATIVE: CASE EVENT DATE: 20200408
